FAERS Safety Report 6331114-7 (Version None)
Quarter: 2009Q3

REPORT INFORMATION
  Report Type: 
  Country: None (occurrence: None)
  Receive Date: 20090827
  Receipt Date: 20090819
  Transmission Date: 20100115
  Serious: Yes (Death)
  Sender: FDA-Public Use
  Company Number: ES-ROCHE-650068

PATIENT
  Sex: Male
  Weight: 64 kg

DRUGS (6)
  1. CAPECITABINE [Suspect]
     Dosage: LAST DOSE PRIOR TO SAE 28 JULY 2009.
     Route: 048
     Dates: start: 20090629, end: 20090804
  2. DOCETAXEL [Suspect]
     Dosage: FORM : INFUSION.  LAST DOSE PRIOR TO SAE 21 JULY 2009
     Route: 042
     Dates: start: 20090629, end: 20090810
  3. OXALIPLATIN [Suspect]
     Dosage: FORM : INFUSION.  LAST DOSE PRIOR TO SAE 21 JULY 2009.
     Route: 042
     Dates: start: 20090629, end: 20090810
  4. TRAMADOL HCL [Concomitant]
     Dates: start: 20090626
  5. NOLOTIL [Concomitant]
     Dates: start: 20090713
  6. OMEPRAZOL [Concomitant]
     Dates: start: 20090626

REACTIONS (1)
  - DISEASE PROGRESSION [None]
